FAERS Safety Report 5091606-8 (Version None)
Quarter: 2006Q3

REPORT INFORMATION
  Report Type: 
  Country: None (occurrence: None)
  Receive Date: 20060824
  Receipt Date: 20060811
  Transmission Date: 20061208
  Serious: Yes (Hospitalization)
  Sender: FDA-Public Use
  Company Number: 2006097909

PATIENT
  Age: 57 Year
  Sex: Male

DRUGS (6)
  1. SUTENT [Suspect]
     Indication: ILL-DEFINED DISORDER
     Dosage: 50 + 37.5 MG ( 1 IN 1 D), ORAL
     Route: 048
     Dates: start: 20000711, end: 20060727
  2. SUTENT [Suspect]
     Indication: ILL-DEFINED DISORDER
     Dosage: 50 + 37.5 MG ( 1 IN 1 D), ORAL
     Route: 048
     Dates: start: 20060803
  3. TRILEPTAL [Concomitant]
  4. MORPHINE SULFATE [Concomitant]
  5. DURAGESIC-100 [Concomitant]
  6. PRAZEPAM [Concomitant]

REACTIONS (1)
  - COLONIC FISTULA [None]
